FAERS Safety Report 7287096-7 (Version None)
Quarter: 2011Q1

REPORT INFORMATION
  Report Type: 
  Country: None (occurrence: None)
  Receive Date: 20110211
  Receipt Date: 20110207
  Transmission Date: 20110831
  Serious: Yes (Other)
  Sender: FDA-Public Use
  Company Number: PT-AMGEN-PRTSP2010006218

PATIENT
  Age: 69 Year
  Sex: Female

DRUGS (15)
  1. ENBREL [Suspect]
     Indication: PSORIASIS
     Dosage: 25 MG, QWK
  2. FOLICIL [Concomitant]
     Dosage: UNK
     Dates: start: 20100820
  3. FOSAVANCE [Concomitant]
     Dosage: UNK
     Dates: start: 20090604
  4. ENBREL [Suspect]
     Indication: RHEUMATOID ARTHRITIS
     Dosage: 50 MG, WEEKLY
     Route: 058
     Dates: start: 20090604
  5. LASIX [Concomitant]
     Dosage: UNK
     Dates: start: 20090402
  6. GLUCOSAMINE [Concomitant]
     Dosage: UNK
     Dates: start: 20091217
  7. DAFLON                             /00426001/ [Concomitant]
     Dosage: UNK
     Dates: start: 20090115
  8. WARFARIN SODIUM [Concomitant]
     Dosage: UNK
     Dates: start: 20040101
  9. ENBREL [Suspect]
     Indication: PSORIATIC ARTHROPATHY
  10. PREDNISOLONE [Suspect]
     Indication: RHEUMATOID ARTHRITIS
     Dosage: 5 MG, 1X/DAY
     Dates: end: 20101101
  11. INDAPAMIDE [Concomitant]
     Dosage: UNK
  12. NAPROXEN [Concomitant]
     Dosage: UNK
     Dates: start: 20090910
  13. PLAQUINOL [Concomitant]
     Dosage: UNK
     Dates: start: 20100820
  14. PRETERAX [Concomitant]
     Dosage: UNK
     Dates: start: 20090402
  15. INDAPAMIDE [Concomitant]
     Dosage: UNK

REACTIONS (2)
  - HIDRADENITIS [None]
  - PSORIASIS [None]
